FAERS Safety Report 8107839-X (Version None)
Quarter: 2012Q1

REPORT INFORMATION
  Report Type: 
  Country: None (occurrence: None)
  Receive Date: 20120202
  Receipt Date: 20120130
  Transmission Date: 20120608
  Serious: No
  Sender: FDA-Public Use
  Company Number: US-BAYER-2012-009631

PATIENT
  Sex: Female

DRUGS (1)
  1. BEYAZ [Suspect]
     Dosage: 2 DF, UNK
     Route: 048
     Dates: start: 20120122

REACTIONS (5)
  - DYSPEPSIA [None]
  - NAUSEA [None]
  - ABDOMINAL PAIN [None]
  - RETCHING [None]
  - ERUCTATION [None]
